FAERS Safety Report 25986591 (Version 1)
Quarter: 2025Q4

REPORT INFORMATION
  Report Type: Spontaneous
  Country: US (occurrence: US)
  Receive Date: 20251031
  Receipt Date: 20251031
  Transmission Date: 20260117
  Serious: No
  Sender: BOEHRINGER INGELHEIM
  Company Number: US-BoehringerIngelheim-2025-BI-104011

PATIENT
  Sex: Female

DRUGS (4)
  1. SPEVIGO [Suspect]
     Active Substance: SPESOLIMAB-SBZO
     Indication: Generalised pustular psoriasis
     Dates: start: 20251017
  2. SPEVIGO [Suspect]
     Active Substance: SPESOLIMAB-SBZO
     Indication: Generalised pustular psoriasis
  3. SPEVIGO [Suspect]
     Active Substance: SPESOLIMAB-SBZO
  4. RINVOQ [Concomitant]
     Active Substance: UPADACITINIB
     Dates: start: 20251007, end: 20251013

REACTIONS (2)
  - Pustule [Unknown]
  - Drug ineffective [Unknown]
